APPROVED DRUG PRODUCT: ESTRADIOL AND NORETHINDRONE ACETATE
Active Ingredient: ESTRADIOL; NORETHINDRONE ACETATE
Strength: 1MG;0.5MG
Dosage Form/Route: TABLET;ORAL
Application: A078324 | Product #001 | TE Code: AB
Applicant: BRECKENRIDGE PHARMACEUTICAL INC
Approved: Apr 17, 2008 | RLD: No | RS: No | Type: RX